FAERS Safety Report 12528269 (Version 10)
Quarter: 2018Q3

REPORT INFORMATION
  Report Type: Report from Study
  Country: None (occurrence: NL)
  Receive Date: 20160705
  Receipt Date: 20180907
  Transmission Date: 20181010
  Serious: Yes (Other)
  Sender: FDA-Public Use
  Company Number: NL-ABBVIE-16K-114-1665608-00

PATIENT
  Sex: Male
  Weight: 65 kg

DRUGS (9)
  1. DUODOPA [Suspect]
     Active Substance: CARBIDOPA\LEVODOPA
     Indication: PARKINSON^S DISEASE
     Dosage: MORNING DOSE: 10.2, CONTINUOUS DOSE: 5.6, EXTRA DOSE: 4, NIGHT DOSE:4.5
     Route: 050
     Dates: start: 20131011, end: 2016
  2. DUODOPA [Suspect]
     Active Substance: CARBIDOPA\LEVODOPA
     Dosage: CONTINUOUS DOSE IS INCREASED
     Route: 050
     Dates: start: 2016
  3. DUODOPA [Suspect]
     Active Substance: CARBIDOPA\LEVODOPA
     Dosage: RAISING THE CONTINUOUS DOSE WITH 0.2 ML
     Route: 050
  4. DUODOPA [Suspect]
     Active Substance: CARBIDOPA\LEVODOPA
     Dosage: MORNING DOSE: 10 CONTINUOUS DOSE: 6.6 EXTRA DOSE: 4 NIGHT DOSE: 4.7
     Route: 050
  5. DUODOPA [Suspect]
     Active Substance: CARBIDOPA\LEVODOPA
     Route: 050
  6. EXELON [Suspect]
     Active Substance: RIVASTIGMINE TARTRATE
     Indication: PRODUCT USED FOR UNKNOWN INDICATION
     Route: 065
  7. QUETIAPINE. [Suspect]
     Active Substance: QUETIAPINE
     Indication: PRODUCT USED FOR UNKNOWN INDICATION
     Route: 065
  8. TRIAMCINOLONACETONIDE [Concomitant]
     Active Substance: TRIAMCINOLONE ACETONIDE
     Indication: PRODUCT USED FOR UNKNOWN INDICATION
     Route: 065
  9. EXELON [Suspect]
     Active Substance: RIVASTIGMINE TARTRATE
     Dosage: DOSE INCREASE
     Route: 065

REACTIONS (51)
  - Postoperative wound complication [Recovered/Resolved]
  - Skin fissures [Recovered/Resolved]
  - Dyspnoea [Not Recovered/Not Resolved]
  - Stoma site irritation [Not Recovered/Not Resolved]
  - Dystonia [Not Recovered/Not Resolved]
  - Postoperative wound complication [Recovered/Resolved]
  - Nasopharyngitis [Not Recovered/Not Resolved]
  - Pain in extremity [Not Recovered/Not Resolved]
  - Stoma site irritation [Recovered/Resolved]
  - Stoma site discharge [Recovered/Resolved]
  - Stoma site reaction [Not Recovered/Not Resolved]
  - Stoma site extravasation [Not Recovered/Not Resolved]
  - Urinary tract infection [Not Recovered/Not Resolved]
  - Hallucination, visual [Recovering/Resolving]
  - Dry skin [Not Recovered/Not Resolved]
  - Hypokinesia [Not Recovered/Not Resolved]
  - Hypophagia [Not Recovered/Not Resolved]
  - Movement disorder [Not Recovered/Not Resolved]
  - On and off phenomenon [Not Recovered/Not Resolved]
  - Stoma site discharge [Recovered/Resolved]
  - Stoma site irritation [Recovered/Resolved]
  - Somnolence [Not Recovered/Not Resolved]
  - Peritoneal hernia [Not Recovered/Not Resolved]
  - Grimacing [Not Recovered/Not Resolved]
  - Fibroma [Recovered/Resolved]
  - Fibroma [Not Recovered/Not Resolved]
  - Salivary hypersecretion [Not Recovered/Not Resolved]
  - Stoma site erythema [Not Recovered/Not Resolved]
  - Stoma site pain [Recovered/Resolved]
  - Squamous cell carcinoma [Not Recovered/Not Resolved]
  - Hyperkeratosis [Not Recovered/Not Resolved]
  - Decubitus ulcer [Not Recovered/Not Resolved]
  - Restlessness [Not Recovered/Not Resolved]
  - Stoma site discomfort [Recovered/Resolved]
  - Stoma site infection [Not Recovered/Not Resolved]
  - Stoma site pain [Recovered/Resolved]
  - Initial insomnia [Not Recovered/Not Resolved]
  - Confusional state [Not Recovered/Not Resolved]
  - Diarrhoea [Unknown]
  - Movement disorder [Recovered/Resolved]
  - Disturbance in attention [Not Recovered/Not Resolved]
  - Dyskinesia [Recovered/Resolved]
  - Stoma site discomfort [Recovered/Resolved]
  - Hallucination, auditory [Recovering/Resolving]
  - Wound complication [Recovered/Resolved]
  - Tinnitus [Not Recovered/Not Resolved]
  - Stoma site discharge [Recovered/Resolved]
  - Stoma site discomfort [Not Recovered/Not Resolved]
  - Stoma site infection [Recovered/Resolved]
  - Stoma site discharge [Not Recovered/Not Resolved]
  - Dysphagia [Not Recovered/Not Resolved]

NARRATIVE: CASE EVENT DATE: 2016
